FAERS Safety Report 5844601-2 (Version None)
Quarter: 2008Q3

REPORT INFORMATION
  Report Type: 
  Country: None (occurrence: None)
  Receive Date: 20080812
  Receipt Date: 20080702
  Transmission Date: 20090109
  Serious: Yes (Other)
  Sender: FDA-Public Use
  Company Number: 200800122

PATIENT
  Sex: Female

DRUGS (1)
  1. ARTICAINE HYDROCHLORIDE 4% W/EPINEPHRINE 1:200,000 [Suspect]
     Indication: LOCAL ANAESTHESIA
     Dosage: PARENTERAL
     Route: 051

REACTIONS (1)
  - ERYTHEMA MULTIFORME [None]
